FAERS Safety Report 8462487-7 (Version None)
Quarter: 2012Q2

REPORT INFORMATION
  Report Type: 
  Country: None (occurrence: None)
  Receive Date: 20120625
  Receipt Date: 20120619
  Transmission Date: 20120825
  Serious: Yes (Hospitalization)
  Sender: FDA-Public Use
  Company Number: US-JNJFOC-20120610592

PATIENT
  Sex: Female
  Weight: 50.62 kg

DRUGS (2)
  1. PREDNISONE [Concomitant]
  2. REMICADE [Suspect]
     Indication: COLITIS ULCERATIVE
     Route: 042
     Dates: start: 20110915

REACTIONS (1)
  - COLITIS ULCERATIVE [None]
